FAERS Safety Report 6207444-6 (Version None)
Quarter: 2009Q2

REPORT INFORMATION
  Report Type: 
  Country: None (occurrence: None)
  Receive Date: 20090528
  Receipt Date: 20090519
  Transmission Date: 20091009
  Serious: Yes (Other)
  Sender: FDA-Public Use
  Company Number: US-CELGENEUS-163-21880-09042606

PATIENT
  Sex: Female

DRUGS (2)
  1. REVLIMID [Suspect]
     Indication: MULTIPLE MYELOMA
     Route: 048
     Dates: start: 20090201
  2. REVLIMID [Suspect]
     Route: 048
     Dates: start: 20080912, end: 20090201

REACTIONS (5)
  - DYSPHONIA [None]
  - EYE DISORDER [None]
  - FATIGUE [None]
  - HAEMOGLOBIN DECREASED [None]
  - NASOPHARYNGITIS [None]
